FAERS Safety Report 6536864-5 (Version None)
Quarter: 2010Q1

REPORT INFORMATION
  Report Type: 
  Country: None (occurrence: None)
  Receive Date: 20100107
  Receipt Date: 20091229
  Transmission Date: 20100710
  Serious: Yes (Other)
  Sender: FDA-Public Use
  Company Number: 2009EK004193

PATIENT

DRUGS (4)
  1. MORPHINE SULFATE [Suspect]
     Indication: PAIN MANAGEMENT
     Dosage: X1; ED
     Route: 008
  2. BUPIVACAINE HYDROCHLORIDE [Concomitant]
  3. WARFARIN [Concomitant]
  4. ANTIEMETICS AND ANTINAUSEANTS [Concomitant]

REACTIONS (3)
  - POST PROCEDURAL COMPLICATION [None]
  - PULMONARY EMBOLISM [None]
  - SUPRAVENTRICULAR TACHYCARDIA [None]
